FAERS Safety Report 8200487-2 (Version None)
Quarter: 2012Q1

REPORT INFORMATION
  Report Type: 
  Country: None (occurrence: None)
  Receive Date: 20120312
  Receipt Date: 20120302
  Transmission Date: 20120608
  Serious: Yes (Other)
  Sender: FDA-Public Use
  Company Number: US-BAYER-2011-032953

PATIENT
  Age: 28 Year
  Sex: Female
  Weight: 107.94 kg

DRUGS (1)
  1. YASMIN [Suspect]
     Dosage: UNK
     Dates: start: 20070101, end: 20080101

REACTIONS (11)
  - DIARRHOEA [None]
  - ABDOMINAL DISTENSION [None]
  - CONSTIPATION [None]
  - CHOLECYSTECTOMY [None]
  - ANXIETY [None]
  - SCAR [None]
  - FLATULENCE [None]
  - DYSPEPSIA [None]
  - DEPRESSION [None]
  - PULMONARY EMBOLISM [None]
  - MENTAL DISORDER [None]
